FAERS Safety Report 17747142 (Version 1)
Quarter: 2020Q2

REPORT INFORMATION
  Report Type: Spontaneous
  Country: GB (occurrence: GB)
  Receive Date: 20200505
  Receipt Date: 20200505
  Transmission Date: 20200714
  Serious: Yes (Hospitalization)
  Sender: FDA-Public Use
  Company Number: GB-MYLANLABS-2020M1043578

PATIENT
  Age: 82 Year
  Sex: Female

DRUGS (13)
  1. FERROUS FUMARATE [Concomitant]
     Active Substance: FERROUS FUMARATE
     Dosage: 630 MILLIGRAM, QD
     Route: 048
  2. PARACETAMOL [Concomitant]
     Active Substance: ACETAMINOPHEN
     Dosage: UNK UNK, PRN (1-2 FOUR TIMES PER DAY AS NEEDED)
     Route: 048
  3. INSULIN HUMAN [Suspect]
     Active Substance: INSULIN HUMAN
     Indication: PRODUCT USED FOR UNKNOWN INDICATION
     Dosage: 10UNITS BREAKFAST AND 20UNITS AT TEATIME
     Route: 058
  4. FUROSEMIDE. [Concomitant]
     Active Substance: FUROSEMIDE
     Dosage: 20 MILLIGRAM, QD
     Route: 048
  5. METFORMIN [Concomitant]
     Active Substance: METFORMIN HYDROCHLORIDE
     Dosage: 1000 MILLIGRAM, QD
     Route: 048
  6. FENTANYL. [Concomitant]
     Active Substance: FENTANYL
     Dosage: 1 DOSAGE FORM, Q3D
     Route: 062
  7. SIMVASTATIN. [Concomitant]
     Active Substance: SIMVASTATIN
     Dosage: 40 MILLIGRAM, QD (AT NIGHT)
     Route: 048
  8. GABAPENTIN. [Suspect]
     Active Substance: GABAPENTIN
     Indication: PRODUCT USED FOR UNKNOWN INDICATION
     Dosage: 1800 MILLIGRAM, QD
     Route: 048
  9. LANSOPRAZOLE. [Concomitant]
     Active Substance: LANSOPRAZOLE
     Dosage: 30 MILLIGRAM, QD
     Route: 048
  10. CLONAZEPAM. [Suspect]
     Active Substance: CLONAZEPAM
     Indication: PRODUCT USED FOR UNKNOWN INDICATION
     Dosage: 1 MILLIGRAM, QD (AT NIGHT)
     Route: 048
  11. CANDESARTAN. [Concomitant]
     Active Substance: CANDESARTAN
     Dosage: 16 MILLIGRAM, QD
     Route: 048
  12. DERMOL                             /01330701/ [Concomitant]
     Dosage: UNK UNK, PRN (AS NEEDED)
     Route: 061
  13. CLOPIDOGREL [Concomitant]
     Active Substance: CLOPIDOGREL BISULFATE
     Dosage: 75 MILLIGRAM, QD
     Route: 048

REACTIONS (5)
  - Hypoglycaemia [Unknown]
  - Lethargy [Unknown]
  - Fall [Unknown]
  - Somnolence [Unknown]
  - Confusional state [Recovered/Resolved]

NARRATIVE: CASE EVENT DATE: 20200321
